FAERS Safety Report 6762368-0 (Version None)
Quarter: 2010Q2

REPORT INFORMATION
  Report Type: 
  Country: None (occurrence: None)
  Receive Date: 20100609
  Receipt Date: 20100601
  Transmission Date: 20101027
  Serious: Yes (Other)
  Sender: FDA-Public Use
  Company Number: BR-ROCHE-706903

PATIENT
  Sex: Female
  Weight: 60 kg

DRUGS (1)
  1. ROACUTAN [Suspect]
     Indication: ACNE
     Route: 048
     Dates: start: 20080201, end: 20081101

REACTIONS (6)
  - ABNORMAL SENSATION IN EYE [None]
  - ALOPECIA [None]
  - DYSPEPSIA [None]
  - HAEMORRHAGE [None]
  - HEADACHE [None]
  - STOMACH MASS [None]
